FAERS Safety Report 14350558 (Version 1)
Quarter: 2018Q1

REPORT INFORMATION
  Report Type: Spontaneous
  Country: PT (occurrence: PT)
  Receive Date: 20180104
  Receipt Date: 20180104
  Transmission Date: 20180509
  Serious: Yes (Hospitalization)
  Sender: FDA-Public Use
  Company Number: PT-PFIZER INC-2018001344

PATIENT
  Age: 14 Year
  Sex: Female

DRUGS (1)
  1. LEDERTREXATO [Suspect]
     Active Substance: METHOTREXATE SODIUM
     Indication: JUVENILE IDIOPATHIC ARTHRITIS
     Dosage: 1 DF, ONCE A DAY
     Route: 065
     Dates: start: 20170403

REACTIONS (1)
  - Appendiceal abscess [Unknown]

NARRATIVE: CASE EVENT DATE: 20170822
